FAERS Safety Report 18984771 (Version 3)
Quarter: 2021Q1

REPORT INFORMATION
  Report Type: Spontaneous
  Country: NL (occurrence: NL)
  Receive Date: 20210308
  Receipt Date: 20210320
  Transmission Date: 20210420
  Serious: Yes (Death, Hospitalization)
  Sender: FDA-Public Use
  Company Number: NL-ORGANON-1910NLD007041

PATIENT
  Age: 79 Year
  Sex: Female
  Weight: 50 kg

DRUGS (1)
  1. MIRTAZAPINE. [Suspect]
     Active Substance: MIRTAZAPINE
     Indication: DEPRESSION
     Dosage: 30 MG, QD (1X30)
     Route: 048
     Dates: start: 20190621

REACTIONS (2)
  - Depressed mood [Fatal]
  - Completed suicide [Fatal]

NARRATIVE: CASE EVENT DATE: 20190629
